FAERS Safety Report 5058051-2 (Version None)
Quarter: 2006Q2

REPORT INFORMATION
  Report Type: 
  Country: None (occurrence: None)
  Receive Date: 20060627
  Receipt Date: 20060424
  Transmission Date: 20061013
  Serious: No
  Sender: FDA-Public Use
  Company Number: SP00838

PATIENT
  Sex: Female
  Weight: 50.8029 kg

DRUGS (4)
  1. XIFAXAN [Suspect]
     Indication: HELICOBACTER INFECTION
     Dosage: 600MG/BID,ORAL
     Route: 048
     Dates: start: 20060419
  2. AMPICILLIN [Suspect]
     Indication: HELICOBACTER INFECTION
     Dosage: 500MG/QID,ORAL
     Route: 048
     Dates: start: 20060419
  3. ACIPHEX [Concomitant]
  4. ACTONEL [Concomitant]

REACTIONS (1)
  - ABDOMINAL PAIN UPPER [None]
